FAERS Safety Report 7521883-2 (Version None)
Quarter: 2011Q2

REPORT INFORMATION
  Report Type: 
  Country: None (occurrence: None)
  Receive Date: 20110603
  Receipt Date: 20110525
  Transmission Date: 20111010
  Serious: Yes (Hospitalization)
  Sender: FDA-Public Use
  Company Number: US-SANOFI-AVENTIS-2011SA033354

PATIENT
  Age: 38 Year
  Sex: Female

DRUGS (2)
  1. ALL OTHER THERAPEUTIC PRODUCTS [Suspect]
     Route: 065
  2. ALLEGRA [Suspect]
     Route: 048
     Dates: start: 20101201

REACTIONS (4)
  - HYPOAESTHESIA [None]
  - ERYTHEMA [None]
  - SWELLING [None]
  - ANAPHYLACTIC REACTION [None]
